FAERS Safety Report 17703543 (Version 2)
Quarter: 2020Q2

REPORT INFORMATION
  Report Type: Spontaneous
  Country: FR (occurrence: FR)
  Receive Date: 20200424
  Receipt Date: 20200505
  Transmission Date: 20200714
  Serious: Yes (Hospitalization)
  Sender: FDA-Public Use
  Company Number: NVSC2020FR109893

PATIENT
  Age: 78 Year
  Sex: Male

DRUGS (6)
  1. TEGRETOL [Suspect]
     Active Substance: CARBAMAZEPINE
     Indication: EPILEPSY
     Dosage: 400 MG, QD
     Route: 065
  2. TELMISARTAN. [Suspect]
     Active Substance: TELMISARTAN
     Indication: HYPERTENSION
     Dosage: 80 MG, QD
     Route: 048
     Dates: end: 20200111
  3. GARDENAL [Suspect]
     Active Substance: PHENOBARBITAL
     Indication: EPILEPSY
     Dosage: 50 MG, QD
     Route: 048
  4. TEGRETOL [Suspect]
     Active Substance: CARBAMAZEPINE
     Dosage: CF COMMENTAIRES
     Route: 048
  5. MYSOLINE [Suspect]
     Active Substance: PRIMIDONE
     Indication: EPILEPSY
     Dosage: 250 MG, QD
     Route: 048
  6. ESOMEPRAZOLE. [Suspect]
     Active Substance: ESOMEPRAZOLE MAGNESIUM
     Indication: PRODUCT USED FOR UNKNOWN INDICATION
     Dosage: 20 MG, QD
     Route: 048
     Dates: end: 20200111

REACTIONS (1)
  - Hyponatraemia [Recovered/Resolved]

NARRATIVE: CASE EVENT DATE: 20200111
